FAERS Safety Report 10488788 (Version 2)
Quarter: 2014Q4

REPORT INFORMATION
  Report Type: Spontaneous
  Country: US (occurrence: None)
  Receive Date: 20140930
  Receipt Date: 20141024
  Transmission Date: 20150528
  Serious: Yes (Hospitalization)
  Sender: FDA-Public Use
  Company Number: US-H14001-14-00804

PATIENT
  Age: 74 Year
  Sex: Male
  Weight: 96 kg

DRUGS (17)
  1. HYZAAR (HYZAAR) (TABLETS( (HYDROCHLOROTHIAZIDE, LOSARTAN POTASSIUM) [Concomitant]
  2. TESSALON (BENZONATATE) (200 MILLIGRAM, CAPSULES ) [Concomitant]
  3. CATAPRES (CLONIDINE) (0.1 MILLIGRAM, TABLETS) [Concomitant]
  4. ROBITUSSIN AC (CODEINE PHOS. W/GUAIFENESIN/PHENIRAMINE AL) (SYRUP) (CODEINE PHOSPHATE, GUAIFENESIN, PHENIRAMINE MALEATE) [Concomitant]
  5. CARFILZOMIB (CARFILZOMIB) (UNKNOWN) (CARFILZOMIB) [Suspect]
     Active Substance: CARFILZOMIB
     Indication: PLASMA CELL MYELOMA
     Dosage: 1 IN 1 WK
     Route: 042
     Dates: start: 20140404
  6. CYTOXAN [Concomitant]
     Active Substance: CYCLOPHOSPHAMIDE
  7. NORVASC (AMLODIPINE BESILATE) (5 MILLIGRAM TABLETS) [Concomitant]
  8. PRILOSEC (OMEPRAZOLE) (20 MILLIGRAM, CAPSULES) [Concomitant]
  9. DECADRON [Suspect]
     Active Substance: DEXAMETHASONE
     Indication: PLASMA CELL MYELOMA
     Dosage: 1 IN 1 WK
     Route: 042
     Dates: start: 20140404
  10. LASIX (FUROSEMIDE) (40 MILLIGRAM, TABLETS) [Concomitant]
  11. BYSTOLIC (NEBIVOLOL HYDROCHLORIDE) (20 MILLIGRAM, TABLETS) (NEBIVOLOL HYDROCHLORIDE) [Concomitant]
  12. ZOCOR (SIMVASTATIN) (20 MILLIGRAM, TABLETS) [Concomitant]
  13. COMPAZINE (PROCHLORPERAZINE EDISYLATE) (10 MILLIGRAM. TABLETS) [Concomitant]
  14. VELCADE (BORETEZOMIB) (UNKNOWN) [Concomitant]
  15. ZOVIRSAX (ACICLOVIR) (400 MILLIGRAM, TABLETS) [Concomitant]
  16. ASPIRIN (ACETYLSALICYLIC ACID) (81 MILLIGRAM, TABLETS) [Concomitant]
  17. GLUMETZA (METFORMIN HYDROCHLORIDE) (1000 MILLIGRAM TABLETS) [Concomitant]

REACTIONS (3)
  - Pleural effusion [None]
  - Treatment noncompliance [None]
  - Refusal of treatment by patient [None]

NARRATIVE: CASE EVENT DATE: 20140404
